FAERS Safety Report 12585185 (Version 1)
Quarter: 2016Q3

REPORT INFORMATION
  Report Type: Spontaneous
  Country: GB (occurrence: GB)
  Receive Date: 20160723
  Receipt Date: 20160723
  Transmission Date: 20161109
  Serious: Yes (Other)
  Sender: FDA-Public Use
  Company Number: GB-009507513-1607GBR007494

PATIENT
  Age: 22 Year
  Sex: Female

DRUGS (1)
  1. NEXPLANON [Suspect]
     Active Substance: ETONOGESTREL
     Indication: CONTRACEPTION
     Dosage: TOTAL DAILY DOSE: ONCE
     Route: 059

REACTIONS (2)
  - Furuncle [Unknown]
  - Mood altered [Unknown]
